FAERS Safety Report 9055299 (Version 2)
Quarter: 2013Q1

REPORT INFORMATION
  Report Type: Spontaneous
  Country: DE (occurrence: DE)
  Receive Date: 20130209
  Receipt Date: 20130306
  Transmission Date: 20140127
  Serious: Yes (Other)
  Sender: FDA-Public Use
  Company Number: DE-TEVA-384051GER

PATIENT
  Age: 51 Year
  Sex: Female

DRUGS (3)
  1. MIRTAZAPIN [Suspect]
     Indication: DEPRESSION
     Dosage: 15 MILLIGRAM DAILY;
     Route: 048
     Dates: start: 2005, end: 2005
  2. MIRTAZAPIN [Suspect]
     Dosage: 7.5 MILLIGRAM DAILY;
     Route: 048
     Dates: start: 201201, end: 201211
  3. UTROGEST [Concomitant]

REACTIONS (23)
  - Ocular hypertension [Not Recovered/Not Resolved]
  - Mucosal dryness [Not Recovered/Not Resolved]
  - Myalgia [Recovered/Resolved]
  - Pain in extremity [Recovered/Resolved]
  - Muscle spasms [Recovered/Resolved]
  - Eye pain [Not Recovered/Not Resolved]
  - Oedema peripheral [Recovered/Resolved]
  - Bone marrow oedema [Unknown]
  - Sensation of foreign body [Recovered/Resolved]
  - Cyst [Unknown]
  - Thyroid neoplasm [Unknown]
  - Nausea [Recovered/Resolved]
  - Decreased appetite [Recovered/Resolved]
  - Anxiety [Recovering/Resolving]
  - Initial insomnia [Recovering/Resolving]
  - Paraesthesia [Recovering/Resolving]
  - Neck pain [Not Recovered/Not Resolved]
  - Fat tissue increased [Not Recovered/Not Resolved]
  - Renal cyst [None]
  - Ovarian cyst [None]
  - Uterine cyst [None]
  - Paraesthesia oral [None]
  - Paraesthesia [None]
